FAERS Safety Report 7854157-0 (Version None)
Quarter: 2011Q4

REPORT INFORMATION
  Report Type: 
  Country: None (occurrence: None)
  Receive Date: 20111026
  Receipt Date: 20100909
  Transmission Date: 20120403
  Serious: No
  Sender: FDA-Public Use
  Company Number: US-BRISTOL-MYERS SQUIBB COMPANY-15278583

PATIENT
  Age: 63 Year
  Sex: Male

DRUGS (9)
  1. WELLBUTRIN [Concomitant]
  2. TRUVADA [Concomitant]
  3. ATENOLOL [Concomitant]
  4. BUSPIRONE HCL [Suspect]
     Indication: ANXIETY
     Dosage: PREVIOUSLY BUSPAR (2.5MG BID) FRM DECEMBER 2009
     Dates: start: 20100401
  5. LISINOPRIL [Concomitant]
  6. FAMVIR [Concomitant]
  7. LORAZEPAM [Concomitant]
  8. ANDROGEL [Concomitant]
  9. REYATAZ [Concomitant]

REACTIONS (1)
  - DRUG INEFFECTIVE [None]
